FAERS Safety Report 8999539 (Version 3)
Quarter: 2013Q1

REPORT INFORMATION
  Report Type: Spontaneous
  Country: JP (occurrence: JP)
  Receive Date: 20130103
  Receipt Date: 20130116
  Transmission Date: 20140127
  Serious: Yes (Hospitalization)
  Sender: FDA-Public Use
  Company Number: JP-JNJFOC-20121212562

PATIENT
  Age: 47 Year
  Sex: Female

DRUGS (2)
  1. REMICADE [Suspect]
     Indication: ARTHRALGIA
     Route: 042
  2. METHOTREXATE [Suspect]
     Indication: ARTHRALGIA
     Route: 048

REACTIONS (3)
  - Interstitial lung disease [Recovering/Resolving]
  - Polymyositis [Recovering/Resolving]
  - Antisynthetase syndrome [Unknown]
